FAERS Safety Report 14110399 (Version 1)
Quarter: 2017Q4

REPORT INFORMATION
  Report Type: Spontaneous
  Country: US (occurrence: US)
  Receive Date: 20171019
  Receipt Date: 20171019
  Transmission Date: 20180321
  Serious: Yes (Disabling)
  Sender: FDA-Public Use
  Company Number: None

PATIENT
  Age: 7 Year
  Sex: Female
  Weight: 27 kg

DRUGS (1)
  1. SINGULAIR [Suspect]
     Active Substance: MONTELUKAST SODIUM
     Indication: RESPIRATORY DISORDER
     Dosage: ?          QUANTITY:1 CAPSULE(S);?
     Route: 048
     Dates: start: 20130201, end: 20151001

REACTIONS (14)
  - Hallucination [None]
  - Memory impairment [None]
  - Insomnia [None]
  - Disorientation [None]
  - Hostility [None]
  - Disturbance in attention [None]
  - Abnormal dreams [None]
  - Agitation [None]
  - Depression [None]
  - Irritability [None]
  - Restlessness [None]
  - Aggression [None]
  - Anxiety [None]
  - Tic [None]
